FAERS Safety Report 24797344 (Version 2)
Quarter: 2025Q1

REPORT INFORMATION
  Report Type: Spontaneous
  Country: JP (occurrence: JP)
  Receive Date: 20250102
  Receipt Date: 20250130
  Transmission Date: 20250409
  Serious: Yes (Hospitalization, Other)
  Sender: AMGEN
  Company Number: JP-DSJP-DS-2024-106202-

PATIENT
  Age: 79 Year
  Sex: Female

DRUGS (2)
  1. DENOSUMAB [Suspect]
     Active Substance: DENOSUMAB
     Indication: Osteoporosis
     Dosage: 60 MG, ONCE EVERY 6 MO
     Route: 058
     Dates: start: 20221221, end: 20240624
  2. DARBEPOETIN ALFA [Concomitant]
     Active Substance: DARBEPOETIN ALFA
     Indication: Chronic kidney disease
     Route: 042
     Dates: start: 202310

REACTIONS (3)
  - Osteonecrosis of jaw [Unknown]
  - Humerus fracture [Unknown]
  - Fall [Unknown]

NARRATIVE: CASE EVENT DATE: 20241017
